FAERS Safety Report 5759817-3 (Version None)
Quarter: 2008Q2

REPORT INFORMATION
  Report Type: 
  Country: None (occurrence: None)
  Receive Date: 20080605
  Receipt Date: 20080529
  Transmission Date: 20081010
  Serious: Yes (Hospitalization, Other)
  Sender: FDA-Public Use
  Company Number: FR-WYE-G01604308

PATIENT
  Sex: Female

DRUGS (3)
  1. EFFEXOR [Suspect]
     Indication: DEPRESSION
     Dosage: 37.5 MG TOTAL DAILY
     Route: 048
     Dates: start: 20080404, end: 20080408
  2. PROTHIADEN [Suspect]
     Indication: DEPRESSION
     Dosage: 25 MG TOTAL DAILY
     Route: 048
     Dates: start: 20080327, end: 20080403
  3. ALDACTAZINE [Concomitant]
     Route: 048

REACTIONS (5)
  - FAILURE TO THRIVE [None]
  - GENERAL PHYSICAL HEALTH DETERIORATION [None]
  - HYPOKALAEMIA [None]
  - HYPONATRAEMIA [None]
  - URINARY RETENTION [None]
